FAERS Safety Report 20333800 (Version 1)
Quarter: 2022Q1

REPORT INFORMATION
  Report Type: Spontaneous
  Country: CA (occurrence: CA)
  Receive Date: 20220113
  Receipt Date: 20220113
  Transmission Date: 20220424
  Serious: Yes (Death, Other)
  Sender: FDA-Public Use
  Company Number: CA-JAZZ-2021-CA-024413

PATIENT
  Age: 66 Year
  Sex: Male

DRUGS (2)
  1. ZEPZELCA [Suspect]
     Active Substance: LURBINECTEDIN
     Indication: Product used for unknown indication
     Dosage: CYCLE 1
  2. ZEPZELCA [Suspect]
     Active Substance: LURBINECTEDIN
     Dosage: CYCLE 2

REACTIONS (1)
  - Disease progression [Fatal]
